APPROVED DRUG PRODUCT: ACCUTANE
Active Ingredient: ISOTRETINOIN
Strength: 20MG **Federal Register determination that product was not discontinued or withdrawn for safety or effectiveness reasons**
Dosage Form/Route: CAPSULE;ORAL
Application: N018662 | Product #004
Applicant: HOFFMANN LA ROCHE INC
Approved: Mar 28, 1983 | RLD: Yes | RS: No | Type: DISCN